FAERS Safety Report 14819325 (Version 2)
Quarter: 2018Q2

REPORT INFORMATION
  Report Type: Spontaneous
  Country: US (occurrence: US)
  Receive Date: 20180427
  Receipt Date: 20180601
  Transmission Date: 20180711
  Serious: No
  Sender: FDA-Public Use
  Company Number: US-ASTRAZENECA-2018SE41779

PATIENT
  Sex: Female
  Weight: 99.8 kg

DRUGS (4)
  1. PULMICORT TURBUHALER [Suspect]
     Active Substance: BUDESONIDE
     Indication: WHEEZING
     Dosage: ONE PUFF TWICE A DAY
     Route: 055
     Dates: start: 20180305
  2. PULMICORT TURBUHALER [Suspect]
     Active Substance: BUDESONIDE
     Indication: DYSPNOEA
     Dosage: ONE PUFF TWICE A DAY
     Route: 055
     Dates: start: 20180305
  3. ALBUTEROL. [Concomitant]
     Active Substance: ALBUTEROL
     Indication: CHEST DISCOMFORT
     Dosage: AS REQUIRED
     Route: 055
  4. ALBUTEROL. [Concomitant]
     Active Substance: ALBUTEROL
     Indication: DYSPNOEA
     Dosage: AS REQUIRED
     Route: 055

REACTIONS (7)
  - Chest discomfort [Unknown]
  - Product use in unapproved indication [Unknown]
  - Device malfunction [Unknown]
  - Dyspnoea [Unknown]
  - Off label use [Unknown]
  - Circumstance or information capable of leading to medication error [Unknown]
  - Drug ineffective [Unknown]
